FAERS Safety Report 7858124-2 (Version None)
Quarter: 2011Q4

REPORT INFORMATION
  Report Type: 
  Country: None (occurrence: None)
  Receive Date: 20111027
  Receipt Date: 20111014
  Transmission Date: 20120403
  Serious: Yes (Other)
  Sender: FDA-Public Use
  Company Number: US-BAYER-2011-027437

PATIENT
  Sex: Female

DRUGS (4)
  1. DROSPIRENONE AND ETHINYL ESTRADIOL [Suspect]
     Indication: ACNE
     Dosage: UNK
     Dates: start: 20040101, end: 20090101
  2. ZOLOFT [Concomitant]
  3. YASMIN [Suspect]
     Indication: ACNE
     Dosage: UNK UNK, QD
     Route: 048
     Dates: start: 20000101, end: 20020101
  4. YAZ [Suspect]
     Indication: ACNE
     Dosage: UNK, QD
     Route: 048
     Dates: start: 20020101, end: 20040101

REACTIONS (8)
  - THROMBOPHLEBITIS SUPERFICIAL [None]
  - INJURY [None]
  - PAIN [None]
  - ANXIETY [None]
  - ANHEDONIA [None]
  - GENERAL PHYSICAL HEALTH DETERIORATION [None]
  - EMOTIONAL DISTRESS [None]
  - THROMBOSIS [None]
